FAERS Safety Report 13373817 (Version 3)
Quarter: 2017Q3

REPORT INFORMATION
  Report Type: Spontaneous
  Country: US (occurrence: US)
  Receive Date: 20170327
  Receipt Date: 20170814
  Transmission Date: 20171127
  Serious: No
  Sender: FDA-Public Use
  Company Number: US-PFIZER INC-2017129949

PATIENT
  Age: 69 Year
  Sex: Female
  Weight: 75.8 kg

DRUGS (16)
  1. ELIQUIS [Concomitant]
     Active Substance: APIXABAN
     Dosage: 5 MG, 2X/DAY
     Route: 048
  2. ASPIRIN 81 [Concomitant]
     Active Substance: ASPIRIN
     Dosage: 81 MG, DAILY
     Route: 048
  3. DIGOXIN. [Concomitant]
     Active Substance: DIGOXIN
     Dosage: 0.25 MG, DAILY
  4. LETROZOLE. [Suspect]
     Active Substance: LETROZOLE
     Dosage: 2.5 MG, DAILY
     Route: 048
     Dates: start: 20160831
  5. DIGOXIN. [Concomitant]
     Active Substance: DIGOXIN
     Dosage: 250 UG, DAILY
     Route: 048
  6. METOPROLOL TARTRATE. [Concomitant]
     Active Substance: METOPROLOL TARTRATE
     Dosage: 100 MG, 2X/DAY
     Route: 048
  7. LANTUS [Concomitant]
     Active Substance: INSULIN GLARGINE
     Dosage: 55 IU, 1X/DAY (55 UNITS AT BEDTIME)
  8. IBRANCE [Suspect]
     Active Substance: PALBOCICLIB
     Indication: BREAST CANCER METASTATIC
     Dosage: 125 MG, CYCLIC (1 TABLET DAILY X 21 D OFF 7 AND REPEAT)
     Dates: start: 20161221
  9. METFORMIN [Concomitant]
     Active Substance: METFORMIN HYDROCHLORIDE
     Dosage: 1000 MG, 2X/DAY
  10. LATANOPROST. [Concomitant]
     Active Substance: LATANOPROST
     Dosage: 2 GTT, DAILY(1 DROP, EYE BOTH, DAILY, 2 ML)
     Route: 047
  11. LEVEMIR [Concomitant]
     Active Substance: INSULIN DETEMIR
     Dosage: 55 IU, 1X/DAY(TOUCH; 55 UNITS, SQ, QHS)
     Route: 058
  12. METFORMIN [Concomitant]
     Active Substance: METFORMIN HYDROCHLORIDE
     Dosage: 500 MG, 2X/DAY
     Route: 048
  13. IBRANCE [Suspect]
     Active Substance: PALBOCICLIB
     Dosage: 100 MG, CYCLIC (28 DAY SUPPLY)
  14. DILTIAZEM. [Concomitant]
     Active Substance: DILTIAZEM
     Dosage: 60 MG, 3X/DAY
     Route: 048
  15. ESCITALOPRAM [Concomitant]
     Active Substance: ESCITALOPRAM OXALATE
     Dosage: 10 MG, DAILY
     Route: 048
  16. GLIMEPIRIDE. [Concomitant]
     Active Substance: GLIMEPIRIDE
     Dosage: 2 MG, DAILY

REACTIONS (11)
  - Upper respiratory tract infection [Recovered/Resolved]
  - Constipation [Unknown]
  - Fatigue [Unknown]
  - Heart rate abnormal [Unknown]
  - Candida infection [Unknown]
  - Stomatitis [Recovering/Resolving]
  - Diarrhoea [Unknown]
  - Dyspnoea [Unknown]
  - Arthralgia [Unknown]
  - Bronchitis [Recovering/Resolving]
  - Depression [Not Recovered/Not Resolved]
